FAERS Safety Report 5066583-6 (Version None)
Quarter: 2006Q3

REPORT INFORMATION
  Report Type: 
  Country: None (occurrence: None)
  Receive Date: 20060728
  Receipt Date: 20060718
  Transmission Date: 20061208
  Serious: Yes (Hospitalization, Other)
  Sender: FDA-Public Use
  Company Number: 227312

PATIENT
  Age: 65 Year
  Sex: Male

DRUGS (6)
  1. RITUXAN [Suspect]
     Indication: LYMPHOMA
     Dates: start: 20041201, end: 20060601
  2. FLUDARABINE [Suspect]
     Indication: LYMPHOMA
     Dates: start: 20041201, end: 20050501
  3. TIAZAC [Concomitant]
  4. CELEXA [Concomitant]
  5. K-DUR 10 [Concomitant]
  6. CLONIDINE [Concomitant]

REACTIONS (5)
  - MYELODYSPLASTIC SYNDROME [None]
  - NEUTROPENIA [None]
  - PLATELET COUNT DECREASED [None]
  - SUBCUTANEOUS ABSCESS [None]
  - WHITE BLOOD CELL COUNT DECREASED [None]
